FAERS Safety Report 8455732-5 (Version None)
Quarter: 2012Q2

REPORT INFORMATION
  Report Type: 
  Country: None (occurrence: None)
  Receive Date: 20120621
  Receipt Date: 20120608
  Transmission Date: 20120825
  Serious: Yes (Other)
  Sender: FDA-Public Use
  Company Number: US-PFIZER INC-2011117327

PATIENT
  Sex: Male

DRUGS (2)
  1. DILANTIN [Suspect]
     Indication: CONVULSION
     Dosage: UNK
     Route: 048
  2. PHENYTOIN SODIUM [Suspect]
     Indication: CONVULSION
     Dosage: UNK
     Route: 042

REACTIONS (1)
  - STEVENS-JOHNSON SYNDROME [None]
